FAERS Safety Report 9347150 (Version 4)
Quarter: 2013Q3

REPORT INFORMATION
  Report Type: Report from Study
  Country: NO (occurrence: NO)
  Receive Date: 20130613
  Receipt Date: 20130906
  Transmission Date: 20140515
  Serious: Yes (Death, Hospitalization)
  Sender: FDA-Public Use
  Company Number: NO-SANOFI-AVENTIS-2013SA056555

PATIENT
  Age: 58 Year
  Sex: Female

DRUGS (8)
  1. DOCETAXEL [Suspect]
     Indication: BREAST CANCER
     Route: 042
     Dates: start: 20120523, end: 20120523
  2. DOCETAXEL [Suspect]
     Indication: BREAST CANCER
     Route: 042
     Dates: start: 20120606, end: 20120606
  3. DOCETAXEL [Suspect]
     Indication: BREAST CANCER
     Route: 042
     Dates: start: 20120620, end: 20120620
  4. DOCETAXEL [Suspect]
     Indication: BREAST CANCER
     Route: 042
     Dates: start: 20120704, end: 20120704
  5. NEULASTA [Concomitant]
     Indication: BONE MARROW CONDITIONING REGIMEN
     Dosage: REPEATED EVERY 14 DAYS
     Route: 058
  6. APREPITANT [Concomitant]
  7. DEXAMETHASONE [Concomitant]
  8. ONDANSETRON [Concomitant]

REACTIONS (26)
  - Pneumomediastinum [Fatal]
  - Pneumothorax [Fatal]
  - Hypoxia [Fatal]
  - Hypercapnia [Fatal]
  - Pneumonitis [Fatal]
  - Fatigue [Fatal]
  - Dyspnoea [Fatal]
  - Lung infiltration [Fatal]
  - Oxygen saturation decreased [Fatal]
  - C-reactive protein increased [Fatal]
  - Pyrexia [Fatal]
  - Aspiration [Fatal]
  - Cough [Fatal]
  - Respiratory distress [Fatal]
  - Pulmonary function test decreased [Fatal]
  - Interstitial lung disease [Fatal]
  - Respiratory failure [Fatal]
  - Endotracheal intubation [Fatal]
  - Mechanical ventilation [Fatal]
  - Dyspnoea [Fatal]
  - Pneumopericardium [Fatal]
  - Tachycardia [Fatal]
  - Haemothorax [Fatal]
  - Blood pressure systolic decreased [Unknown]
  - Condition aggravated [Unknown]
  - Atypical pneumonia [Fatal]
